FAERS Safety Report 5764354-6 (Version None)
Quarter: 2008Q2

REPORT INFORMATION
  Report Type: 
  Country: None (occurrence: None)
  Receive Date: 20080610
  Receipt Date: 20080523
  Transmission Date: 20081010
  Serious: No
  Sender: FDA-Public Use
  Company Number: US-BOEHRINGER INGELHEIM GMBH, GERMANY-2008-BP-08067BP

PATIENT
  Age: 24 Year
  Sex: Male

DRUGS (2)
  1. ZANTAC 75 [Suspect]
     Indication: NAUSEA
     Route: 048
     Dates: start: 20080521, end: 20080522
  2. ZANTAC 75 [Suspect]
     Indication: DYSPEPSIA

REACTIONS (3)
  - EYE SWELLING [None]
  - RASH GENERALISED [None]
  - RASH PRURITIC [None]
